FAERS Safety Report 20070076 (Version 1)
Quarter: 2021Q4

REPORT INFORMATION
  Report Type: Spontaneous
  Country: US (occurrence: US)
  Receive Date: 20211115
  Receipt Date: 20211115
  Transmission Date: 20220303
  Serious: No
  Sender: FDA-Public Use
  Company Number: US-SA-SAC20211109001256

PATIENT
  Age: 66 Year
  Sex: Female

DRUGS (24)
  1. DUPIXENT [Suspect]
     Active Substance: DUPILUMAB
     Indication: Dermatitis atopic
     Dosage: 300 MG, QOW
     Route: 058
     Dates: start: 20210331
  2. ACYCLOVIR [Concomitant]
     Active Substance: ACYCLOVIR
     Dosage: UNK
  3. CEPHALEXIN [Concomitant]
     Active Substance: CEPHALEXIN
  4. CLONAZEPAM [Concomitant]
     Active Substance: CLONAZEPAM
  5. FLUTICASONE [Concomitant]
     Active Substance: FLUTICASONE
  6. GEMTESA [Concomitant]
     Active Substance: VIBEGRON
  7. JANUVIA [Concomitant]
     Active Substance: SITAGLIPTIN PHOSPHATE
  8. MOMETASONE [Concomitant]
     Active Substance: MOMETASONE
  9. MONTELUKAST [Concomitant]
     Active Substance: MONTELUKAST SODIUM
  10. PRAVASTATIN [Concomitant]
     Active Substance: PRAVASTATIN
  11. PREDNISONE [Concomitant]
     Active Substance: PREDNISONE
     Indication: Dermatitis atopic
  12. PROLIA [Concomitant]
     Active Substance: DENOSUMAB
  13. TOPIRAMATE [Concomitant]
     Active Substance: TOPIRAMATE
  14. TOVIAZ [Concomitant]
     Active Substance: FESOTERODINE FUMARATE
  15. ZIPRASIDONE [Concomitant]
     Active Substance: ZIPRASIDONE
  16. TIZANIDINE [Concomitant]
     Active Substance: TIZANIDINE
  17. SUMATRIPTAN [Concomitant]
     Active Substance: SUMATRIPTAN
  18. MECLIZINE [Concomitant]
     Active Substance: MECLIZINE HYDROCHLORIDE
  19. HYDROXYZINE HYDROCHLORIDE [Concomitant]
     Active Substance: HYDROXYZINE HYDROCHLORIDE
  20. ELIQUIS [Concomitant]
     Active Substance: APIXABAN
  21. DEXILANT [Concomitant]
     Active Substance: DEXLANSOPRAZOLE
  22. CYCLOBENZAPRINE [Concomitant]
     Active Substance: CYCLOBENZAPRINE
  23. CITALOPRAM [Concomitant]
     Active Substance: CITALOPRAM HYDROBROMIDE
  24. POTASSIUM CHLORIDE [Concomitant]
     Active Substance: POTASSIUM CHLORIDE

REACTIONS (1)
  - Dermatitis atopic [Not Recovered/Not Resolved]

NARRATIVE: CASE EVENT DATE: 20210101
